FAERS Safety Report 21902638 (Version 2)
Quarter: 2023Q2

REPORT INFORMATION
  Report Type: Spontaneous
  Country: US (occurrence: US)
  Receive Date: 20230124
  Receipt Date: 20230421
  Transmission Date: 20230721
  Serious: Yes (Other)
  Sender: FDA-Public Use
  Company Number: US-SA-SAC20230123000302

PATIENT
  Sex: Male

DRUGS (1)
  1. DUPIXENT [Suspect]
     Active Substance: DUPILUMAB
     Indication: Pseudoporphyria
     Dosage: 300 MG OTHER
     Route: 058

REACTIONS (4)
  - Thrombosis [Unknown]
  - Injection site irritation [Unknown]
  - Injection site swelling [Unknown]
  - Product use in unapproved indication [Unknown]
